FAERS Safety Report 8136531-0 (Version None)
Quarter: 2012Q1

REPORT INFORMATION
  Report Type: 
  Country: None (occurrence: None)
  Receive Date: 20120214
  Receipt Date: 20120207
  Transmission Date: 20120608
  Serious: Yes (Other)
  Sender: FDA-Public Use
  Company Number: PHEH2012US003262

PATIENT
  Age: 70 Year
  Sex: Female

DRUGS (7)
  1. PROGESTERONE [Concomitant]
     Dosage: 10 MG, UNK
  2. MAXALT [Concomitant]
     Indication: MIGRAINE
     Dosage: UNK UKN, PRN
  3. ESTRADERM [Suspect]
     Dosage: 0.1 MG, ONCE IN A WEEK
     Route: 062
  4. PRAVASTATIN [Concomitant]
     Indication: BLOOD CHOLESTEROL
     Dosage: 40 MG, UNK
  5. NEXIUM [Concomitant]
     Dosage: 40 MG, QD
  6. BOTOX [Suspect]
  7. CODEINE SULFATE [Concomitant]
     Indication: MIGRAINE
     Dosage: UNK UKN, PRN

REACTIONS (2)
  - DISCOMFORT [None]
  - FEELING ABNORMAL [None]
